FAERS Safety Report 24755244 (Version 1)
Quarter: 2024Q4

REPORT INFORMATION
  Report Type: Spontaneous
  Country: GB (occurrence: GB)
  Receive Date: 20241219
  Receipt Date: 20241219
  Transmission Date: 20250114
  Serious: Yes (Other)
  Sender: PFIZER
  Company Number: None

PATIENT
  Age: 51 Year
  Sex: Female

DRUGS (1)
  1. VARENICLINE TARTRATE [Suspect]
     Active Substance: VARENICLINE TARTRATE
     Dosage: UNK
     Dates: start: 20241209, end: 20241212

REACTIONS (4)
  - Lip blister [Unknown]
  - Urticaria [Unknown]
  - Skin mass [Unknown]
  - Pruritus [Unknown]

NARRATIVE: CASE EVENT DATE: 20241212
